FAERS Safety Report 24190383 (Version 1)
Quarter: 2024Q3

REPORT INFORMATION
  Report Type: Spontaneous
  Country: DE (occurrence: DE)
  Receive Date: 20240808
  Receipt Date: 20240808
  Transmission Date: 20241017
  Serious: Yes (Hospitalization)
  Sender: FRESENIUS KABI
  Company Number: DE-CHIESI-2024CHF04609

PATIENT
  Sex: Female

DRUGS (1)
  1. LEVOFLOXACIN [Suspect]
     Active Substance: LEVOFLOXACIN
     Indication: Product used for unknown indication
     Dosage: UNK?FORM OF ADMIN: UNKNOWN
     Route: 065

REACTIONS (2)
  - Anaphylactic shock [Unknown]
  - Loss of consciousness [Unknown]
